FAERS Safety Report 4565515-4 (Version None)
Quarter: 2005Q1

REPORT INFORMATION
  Report Type: 
  Country: None (occurrence: None)
  Receive Date: 20050131
  Receipt Date: 20050105
  Transmission Date: 20050727
  Serious: Yes (Other)
  Sender: FDA-Public Use
  Company Number: BE-GLAXOSMITHKLINE-B0364300A

PATIENT
  Age: 68 Year
  Sex: Male
  Weight: 80 kg

DRUGS (5)
  1. ZYBAN [Suspect]
     Dosage: 2U PER DAY
     Route: 048
     Dates: start: 20041225, end: 20050110
  2. ORAP [Concomitant]
     Indication: DRUG USE FOR UNKNOWN INDICATION
     Dosage: 1MG UNKNOWN
     Route: 065
  3. ANAFRANIL [Concomitant]
     Indication: DRUG USE FOR UNKNOWN INDICATION
     Dosage: 25MG UNKNOWN
     Route: 065
  4. GLUCOPHAGE [Concomitant]
     Indication: DRUG USE FOR UNKNOWN INDICATION
     Dosage: 600MG UNKNOWN
     Route: 065
  5. MINIDIAB [Concomitant]
     Indication: DRUG USE FOR UNKNOWN INDICATION
     Route: 065

REACTIONS (5)
  - ABDOMINAL PAIN UPPER [None]
  - CHOLECYSTITIS [None]
  - HEPATIC ENZYME INCREASED [None]
  - INSOMNIA [None]
  - PYREXIA [None]
